FAERS Safety Report 7288448-1 (Version None)
Quarter: 2011Q1

REPORT INFORMATION
  Report Type: 
  Country: None (occurrence: None)
  Receive Date: 20110211
  Receipt Date: 20110204
  Transmission Date: 20110831
  Serious: Yes (Other)
  Sender: FDA-Public Use
  Company Number: B0645799A

PATIENT
  Sex: Female
  Weight: 53 kg

DRUGS (10)
  1. PANDEMIC VACCINE H1N1 UNSPECIFIED [Suspect]
     Indication: PROPHYLAXIS
     Dosage: 1INJ SINGLE DOSE
     Route: 065
     Dates: start: 20100129, end: 20100129
  2. SAQUINAVIR [Suspect]
     Route: 065
     Dates: start: 20100701
  3. MALARONE [Suspect]
     Indication: MALARIA PROPHYLAXIS
     Dosage: 1TAB PER DAY
     Route: 048
     Dates: start: 20100217, end: 20100314
  4. NICOTINE PATCHES [Concomitant]
     Route: 065
  5. HEPATITIS A VACCINE [Suspect]
     Indication: PROPHYLAXIS
     Dosage: 1INJ SINGLE DOSE
     Route: 065
     Dates: start: 20100113, end: 20100113
  6. TYPHOID VACCINE [Suspect]
     Indication: PROPHYLAXIS
     Dosage: 1INJ SINGLE DOSE
     Route: 030
     Dates: start: 20100113, end: 20100113
  7. RITONAVIR [Suspect]
     Route: 065
     Dates: start: 20100701
  8. TETANUS VACCINE [Suspect]
     Indication: PROPHYLAXIS
     Dosage: 1INJ SINGLE DOSE
     Route: 065
     Dates: start: 20100113, end: 20100113
  9. TETANUS + DIPHTHERIA VACCINE [Suspect]
     Indication: PROPHYLAXIS
     Dosage: 1INJ SINGLE DOSE
     Route: 030
     Dates: start: 20100113, end: 20100113
  10. COMBIVIR [Suspect]
     Route: 065
     Dates: start: 20100701

REACTIONS (5)
  - ANAEMIA [None]
  - RASH [None]
  - DRUG EXPOSURE BEFORE PREGNANCY [None]
  - LIVE BIRTH [None]
  - DRUG EXPOSURE DURING PREGNANCY [None]
